FAERS Safety Report 7602809-X (Version None)
Quarter: 2011Q3

REPORT INFORMATION
  Report Type: 
  Country: None (occurrence: None)
  Receive Date: 20110712
  Receipt Date: 20110705
  Transmission Date: 20111222
  Serious: Yes (Death, Life-Threatening, Hospitalization, Other)
  Sender: FDA-Public Use
  Company Number: JP-CELGENEUS-087-21880-11020211

PATIENT
  Sex: Male

DRUGS (18)
  1. THERADIA [Concomitant]
     Route: 062
     Dates: start: 20101206, end: 20101215
  2. ASPIRIN [Concomitant]
     Indication: PROPHYLAXIS
     Dosage: 100 MILLIGRAM
     Route: 048
     Dates: start: 20101109, end: 20101202
  3. GASMOTIN [Concomitant]
     Indication: PROPHYLAXIS
     Dosage: 15 MILLIGRAM
     Route: 048
     Dates: start: 20101030, end: 20110122
  4. RISUMIC [Concomitant]
     Dosage: 30 MILLIGRAM
     Route: 048
     Dates: start: 20100914, end: 20101202
  5. AMARYL [Concomitant]
     Indication: DIABETES MELLITUS
     Dosage: .5 MILLIGRAM
     Route: 048
     Dates: start: 20101115, end: 20101120
  6. LENDORMIN [Concomitant]
     Dosage: .25 MILLIGRAM
     Route: 048
     Dates: start: 20101122, end: 20101216
  7. ADALAT CC [Concomitant]
     Indication: HYPERTENSION
     Dosage: 20 MILLIGRAM
     Route: 048
     Dates: start: 20101012, end: 20101109
  8. MUCOSTA [Concomitant]
     Indication: PROPHYLAXIS
     Dosage: 300 MILLIGRAM
     Route: 048
     Dates: start: 20101102, end: 20101218
  9. LAXOBERON [Concomitant]
     Dosage: 5-10 DROPS
     Route: 048
     Dates: start: 20101030, end: 20101112
  10. PURSENID [Concomitant]
     Dosage: 12 MILLIGRAM
     Route: 048
     Dates: start: 20101113, end: 20110108
  11. CONIEL [Concomitant]
     Indication: HYPERTENSION
     Dosage: 4 MILLIGRAM
     Route: 048
     Dates: start: 20101213, end: 20110131
  12. LASIX [Concomitant]
     Dosage: 20 MILLIGRAM
     Route: 051
     Dates: start: 20101129, end: 20101211
  13. DEXAMETHASONE [Suspect]
     Indication: MULTIPLE MYELOMA
     Dosage: 20 MILLIGRAM
     Route: 048
     Dates: start: 20101109, end: 20101129
  14. SULFAMETHOXAZOLE [Concomitant]
     Indication: PROPHYLAXIS
     Dosage: 1 TABLET
     Route: 048
     Dates: start: 20101129, end: 20101213
  15. DIFLUCAN [Concomitant]
     Indication: PROPHYLAXIS
     Dosage: 100 MILLIGRAM
     Route: 048
     Dates: start: 20100902, end: 20101218
  16. REVLIMID [Suspect]
     Indication: MULTIPLE MYELOMA
     Dosage: 10 MILLIGRAM
     Route: 048
     Dates: start: 20101109, end: 20101129
  17. LANSOPRAZOLE [Concomitant]
     Indication: PROPHYLAXIS
     Dosage: 15 MILLIGRAM
     Route: 048
     Dates: start: 20101109, end: 20110122
  18. ZOLPIDEM [Concomitant]
     Dosage: 10 MILLIGRAM
     Route: 048
     Dates: start: 20101110, end: 20101121

REACTIONS (7)
  - STOMATITIS [None]
  - RENAL FAILURE ACUTE [None]
  - HAEMOGLOBIN DECREASED [None]
  - STRESS CARDIOMYOPATHY [None]
  - PLATELET COUNT DECREASED [None]
  - PNEUMONIA [None]
  - HERPES ZOSTER [None]
